FAERS Safety Report 15770201 (Version 1)
Quarter: 2018Q4

REPORT INFORMATION
  Report Type: Spontaneous
  Country: US (occurrence: US)
  Receive Date: 20181227
  Receipt Date: 20181227
  Transmission Date: 20190205
  Serious: No
  Sender: FDA-Public Use
  Company Number: None

PATIENT
  Age: 65 Year
  Sex: Female
  Weight: 54 kg

DRUGS (4)
  1. ACETAMINOPHEN. [Concomitant]
     Active Substance: ACETAMINOPHEN
  2. ALEVE [Concomitant]
     Active Substance: NAPROXEN SODIUM
  3. ESTRADIOL TRANSDERMAL SYSTEM [Suspect]
     Active Substance: ESTRADIOL
     Indication: OSTEOPENIA
     Dosage: TRANSDERMAL; 8 PATCHES; TWICE WEEKLY?
     Route: 062
     Dates: start: 20170101, end: 20181226
  4. SOOLANTRA [Concomitant]
     Active Substance: IVERMECTIN

REACTIONS (6)
  - Rash papular [None]
  - Product complaint [None]
  - Product formulation issue [None]
  - Underdose [None]
  - Application site pruritus [None]
  - Application site rash [None]

NARRATIVE: CASE EVENT DATE: 20181226
